FAERS Safety Report 4646251-2 (Version None)
Quarter: 2005Q2

REPORT INFORMATION
  Report Type: 
  Country: None (occurrence: None)
  Receive Date: 20050427
  Receipt Date: 20050408
  Transmission Date: 20051028
  Serious: Yes (Disabling)
  Sender: FDA-Public Use
  Company Number: US-ROCHE-401516

PATIENT
  Age: 51 Year
  Sex: Male
  Weight: 85.8 kg

DRUGS (10)
  1. PEGASYS [Suspect]
     Indication: HEPATITIS C
     Route: 058
     Dates: start: 20040902
  2. PEGASYS [Suspect]
     Route: 058
  3. COPEGUS [Suspect]
     Indication: HEPATITIS C
     Route: 048
     Dates: start: 20040902
  4. COPEGUS [Suspect]
     Route: 048
  5. AMBIEN [Concomitant]
     Indication: INSOMNIA
     Dosage: AT BEDTIME.
     Route: 048
     Dates: start: 20041021
  6. NEXIUM [Concomitant]
     Route: 048
     Dates: start: 20040806
  7. HYDROCHLOROTHIAZIDE [Concomitant]
     Indication: HYPERTENSION
     Route: 048
     Dates: start: 20041008
  8. CIALIS [Concomitant]
  9. ZOLOFT [Concomitant]
     Indication: DEPRESSION
     Route: 048
     Dates: start: 20040830
  10. METAGLIP [Concomitant]

REACTIONS (4)
  - ARTHROPATHY [None]
  - DEAFNESS UNILATERAL [None]
  - EAR PAIN [None]
  - TINNITUS [None]
